FAERS Safety Report 19627691 (Version 1)
Quarter: 2021Q3

REPORT INFORMATION
  Report Type: Spontaneous
  Country: AT (occurrence: AT)
  Receive Date: 20210728
  Receipt Date: 20210728
  Transmission Date: 20211014
  Serious: Yes (Life-Threatening, Other)
  Sender: FDA-Public Use
  Company Number: AT-JNJFOC-20210743647

PATIENT
  Age: 37 Year
  Sex: Male

DRUGS (16)
  1. CLONAZEPAM. [Concomitant]
     Active Substance: CLONAZEPAM
     Indication: SCHIZOPHRENIA
  2. PREGABALIN. [Concomitant]
     Active Substance: PREGABALIN
     Indication: SCHIZOPHRENIA
     Dosage: 300 MG
  3. PREGABALIN. [Concomitant]
     Active Substance: PREGABALIN
  4. QUETIAPINE. [Concomitant]
     Active Substance: QUETIAPINE
     Indication: SCHIZOPHRENIA
  5. QUETIAPINE. [Concomitant]
     Active Substance: QUETIAPINE
  6. ZIPRASIDONE. [Concomitant]
     Active Substance: ZIPRASIDONE
     Indication: SCHIZOPHRENIA
  7. VALPROATE SODIUM. [Suspect]
     Active Substance: VALPROATE SODIUM
     Indication: PRODUCT USED FOR UNKNOWN INDICATION
     Dosage: 1000 MG
     Route: 065
  8. VALPROATE SODIUM. [Suspect]
     Active Substance: VALPROATE SODIUM
     Route: 065
  9. ARIPIPRAZOLE. [Concomitant]
     Active Substance: ARIPIPRAZOLE
     Indication: SCHIZOPHRENIA
  10. ARIPIPRAZOLE. [Concomitant]
     Active Substance: ARIPIPRAZOLE
  11. ESCITALOPRAM [Concomitant]
     Active Substance: ESCITALOPRAM OXALATE
     Indication: SCHIZOPHRENIA
  12. AMISULPRIDE [Concomitant]
     Active Substance: AMISULPRIDE
     Indication: SCHIZOPHRENIA
  13. TOPAMAX [Suspect]
     Active Substance: TOPIRAMATE
     Indication: SCHIZOPHRENIA
     Dosage: 150 MG
     Route: 048
  14. CLONAZEPAM. [Concomitant]
     Active Substance: CLONAZEPAM
  15. TOPAMAX [Interacting]
     Active Substance: TOPIRAMATE
     Dosage: 200 MG
     Route: 048
  16. TRAZODONE [Concomitant]
     Active Substance: TRAZODONE HYDROCHLORIDE
     Indication: SCHIZOPHRENIA
     Dosage: 300 MG

REACTIONS (7)
  - Psychomotor retardation [Recovering/Resolving]
  - Depressed level of consciousness [Recovering/Resolving]
  - Toxic encephalopathy [Recovering/Resolving]
  - Disorientation [Recovering/Resolving]
  - Drug interaction [Recovering/Resolving]
  - Hyperammonaemic encephalopathy [Recovering/Resolving]
  - Disturbance in attention [Recovering/Resolving]
